FAERS Safety Report 22137089 (Version 7)
Quarter: 2023Q4

REPORT INFORMATION
  Report Type: Spontaneous
  Country: US (occurrence: US)
  Receive Date: 20230324
  Receipt Date: 20231005
  Transmission Date: 20240110
  Serious: Yes (Other)
  Sender: FDA-Public Use
  Company Number: US-BRISTOL-MYERS SQUIBB COMPANY-2023-039167

PATIENT
  Age: 74 Year
  Sex: Male

DRUGS (1)
  1. REVLIMID [Suspect]
     Active Substance: LENALIDOMIDE
     Indication: Plasma cell myeloma in remission
     Dosage: DAILY, OTHER, TK\1\HS\ON DAYS 1 TO 7 AND DAYS 15 TO 21 OF EACH. 1 CAP EVERY OTHER WEEK
     Route: 048
     Dates: start: 202009

REACTIONS (9)
  - Diarrhoea [Unknown]
  - Haemorrhage [Unknown]
  - Skin erosion [Unknown]
  - Gastrointestinal disorder [Unknown]
  - Abdominal pain [Unknown]
  - Rash macular [Unknown]
  - Skin ulcer [Unknown]
  - Off label use [Unknown]
  - Memory impairment [Unknown]

NARRATIVE: CASE EVENT DATE: 20210101
